FAERS Safety Report 5796705-0 (Version None)
Quarter: 2008Q2

REPORT INFORMATION
  Report Type: 
  Country: None (occurrence: None)
  Receive Date: 20080627
  Receipt Date: 20080611
  Transmission Date: 20081010
  Serious: Yes (Hospitalization, Other)
  Sender: FDA-Public Use
  Company Number: 2008SP009874

PATIENT
  Age: 45 Year
  Sex: Male

DRUGS (4)
  1. PEG-INTRON [Suspect]
     Indication: HEPATITIS C
     Dosage: SC
     Route: 058
     Dates: start: 20080313
  2. RIBAVIRIN [Suspect]
     Indication: HEPATITIS C
     Dosage: PO
     Route: 048
     Dates: start: 20080313
  3. METFORMIN HCL [Concomitant]
  4. GLUCOPHAGE [Concomitant]

REACTIONS (15)
  - AGITATION [None]
  - ANAEMIA [None]
  - BLOOD COUNT ABNORMAL [None]
  - BLOOD GLUCOSE FLUCTUATION [None]
  - BLOOD IRON DECREASED [None]
  - DECREASED APPETITE [None]
  - DEHYDRATION [None]
  - DEPRESSION [None]
  - DIARRHOEA [None]
  - IMMUNE SYSTEM DISORDER [None]
  - INCREASED TENDENCY TO BRUISE [None]
  - INJECTION SITE REACTION [None]
  - NO THERAPEUTIC RESPONSE [None]
  - SOMNOLENCE [None]
  - WEIGHT DECREASED [None]
